FAERS Safety Report 9468524 (Version 1)
Quarter: 2013Q3

REPORT INFORMATION
  Report Type: Spontaneous
  Country: AU (occurrence: AU)
  Receive Date: 20130821
  Receipt Date: 20130821
  Transmission Date: 20140515
  Serious: Yes (Other)
  Sender: FDA-Public Use
  Company Number: AU-ROCHE-1264752

PATIENT
  Sex: Female
  Weight: 83 kg

DRUGS (8)
  1. HERCEPTIN [Suspect]
     Indication: BREAST CANCER METASTATIC
     Route: 065
     Dates: start: 201102, end: 201107
  2. HERCEPTIN [Suspect]
     Route: 065
     Dates: start: 201203, end: 201304
  3. HERCEPTIN [Suspect]
     Route: 065
     Dates: start: 201305, end: 201307
  4. XELODA [Suspect]
     Indication: BREAST CANCER METASTATIC
     Route: 065
     Dates: start: 201203, end: 201304
  5. ABRAXANE [Concomitant]
     Route: 065
     Dates: start: 201102, end: 201107
  6. ABRAXANE [Concomitant]
     Route: 065
     Dates: start: 201305, end: 201307
  7. LAPATINIB [Concomitant]
     Route: 065
     Dates: start: 201203, end: 201304
  8. EXEMESTANE [Concomitant]
     Route: 065
     Dates: start: 201012, end: 201102

REACTIONS (1)
  - Disease progression [Unknown]
